FAERS Safety Report 21171787 (Version 1)
Quarter: 2022Q3

REPORT INFORMATION
  Report Type: Spontaneous
  Country: GB (occurrence: GB)
  Receive Date: 20220804
  Receipt Date: 20220804
  Transmission Date: 20221027
  Serious: Yes (Hospitalization, Other)
  Sender: FDA-Public Use
  Company Number: None

PATIENT
  Age: 59 Year
  Sex: Male

DRUGS (11)
  1. TIGECYCLINE [Suspect]
     Active Substance: TIGECYCLINE
     Dosage: UNK
  2. BISOPROLOL [Concomitant]
     Active Substance: BISOPROLOL
     Dosage: 2.5 MG, 1X/DAY
  3. EDOXABAN [Concomitant]
     Active Substance: EDOXABAN
     Indication: Atrial fibrillation
     Dosage: AT TEA TIME
  4. FENTANYL [Concomitant]
     Active Substance: FENTANYL
     Dosage: UNK
  5. LINEZOLID [Concomitant]
     Active Substance: LINEZOLID
     Dosage: UNK
  6. METOCLOPRAMIDE [Concomitant]
     Active Substance: METOCLOPRAMIDE
     Dosage: UNK
  7. OMEPRAZOLE [Concomitant]
     Active Substance: OMEPRAZOLE
  8. PABRINEX [ASCORBIC ACID;BENZYL ALCOHOL;NICOTINAMIDE;PYRIDOXINE HYDROCH [Concomitant]
     Dosage: UNK
     Route: 030
  9. PENICILLIN V [Concomitant]
     Active Substance: PENICILLIN V
  10. ROSUVASTATIN [Concomitant]
     Active Substance: ROSUVASTATIN
  11. CREON [Concomitant]
     Active Substance: PANCRELIPASE AMYLASE\PANCRELIPASE LIPASE\PANCRELIPASE PROTEASE

REACTIONS (3)
  - Cholestasis [Recovered/Resolved]
  - Large intestinal obstruction [Unknown]
  - Liver function test abnormal [Recovered/Resolved]

NARRATIVE: CASE EVENT DATE: 20220128
